FAERS Safety Report 26174498 (Version 1)
Quarter: 2025Q4

REPORT INFORMATION
  Report Type: Spontaneous
  Country: US (occurrence: US)
  Receive Date: 20251218
  Receipt Date: 20251218
  Transmission Date: 20260118
  Serious: No
  Sender: ALVOGEN
  Company Number: US-ALVOGEN-2025098692

PATIENT
  Sex: Female

DRUGS (3)
  1. FENTANYL [Suspect]
     Active Substance: FENTANYL
     Indication: Back pain
     Dosage: EXPIRATION DATE: AUG-2027?1ST BOX, DISCARDED; 25 MCG/HR
     Route: 062
     Dates: start: 20250820
  2. FENTANYL [Suspect]
     Active Substance: FENTANYL
     Indication: Back pain
     Dosage: EXPIRATION DATE: AUG-2027?2ND BOX USING CURRENTLY; 25 MCG/HR, MANUFACTURING DATE: 28-AUG-2024
     Route: 062
     Dates: start: 20250902
  3. METOPROLOL [Concomitant]
     Active Substance: METOPROLOL
     Indication: Blood pressure abnormal
     Dosage: IMPRINT CODE AS L14 OR L19?MAY BE ON 10 YEARS
     Dates: start: 2015

REACTIONS (4)
  - Device malfunction [Unknown]
  - Device adhesion issue [Unknown]
  - Wrong technique in product usage process [Unknown]
  - No adverse event [Unknown]

NARRATIVE: CASE EVENT DATE: 20250801
